FAERS Safety Report 6214066-X (Version None)
Quarter: 2009Q2

REPORT INFORMATION
  Report Type: 
  Country: None (occurrence: None)
  Receive Date: 20090604
  Receipt Date: 20090602
  Transmission Date: 20091009
  Serious: Yes (Other)
  Sender: FDA-Public Use
  Company Number: US-AMGEN-US345992

PATIENT
  Sex: Female
  Weight: 131.7 kg

DRUGS (1)
  1. PROCRIT [Suspect]
     Indication: ANAEMIA
     Route: 065
     Dates: start: 20090101, end: 20090401

REACTIONS (2)
  - ANAEMIA [None]
  - APLASIA PURE RED CELL [None]
